FAERS Safety Report 12605685 (Version 1)
Quarter: 2016Q3

REPORT INFORMATION
  Report Type: Spontaneous
  Country: US (occurrence: US)
  Receive Date: 20160729
  Receipt Date: 20160729
  Transmission Date: 20161109
  Serious: No
  Sender: FDA-Public Use
  Company Number: US-ELI_LILLY_AND_COMPANY-US201607007290

PATIENT
  Age: 65 Year
  Sex: Female

DRUGS (13)
  1. GABAPENTIN. [Concomitant]
     Active Substance: GABAPENTIN
  2. VITAMIN D [Concomitant]
     Active Substance: CHOLECALCIFEROL
  3. WARFARIN [Concomitant]
     Active Substance: WARFARIN
     Dosage: UNK
  4. FORTEO [Suspect]
     Active Substance: TERIPARATIDE
     Indication: OSTEOPOROSIS
     Dosage: UNK, QD
     Route: 065
     Dates: start: 20160526, end: 20160529
  5. FENOBIBRATE [Concomitant]
  6. FORTEO [Suspect]
     Active Substance: TERIPARATIDE
     Dosage: UNK, QD
     Route: 065
     Dates: start: 20160531, end: 201606
  7. METOLAZONE. [Concomitant]
     Active Substance: METOLAZONE
  8. CALCIUM [Concomitant]
     Active Substance: CALCIUM
  9. APIDRA [Concomitant]
     Active Substance: INSULIN GLULISINE
  10. LANTUS [Concomitant]
     Active Substance: INSULIN GLARGINE
  11. OXYCODONE [Concomitant]
     Active Substance: OXYCODONE
  12. METOPROLOL. [Concomitant]
     Active Substance: METOPROLOL
  13. LISINOPRIL. [Concomitant]
     Active Substance: LISINOPRIL

REACTIONS (2)
  - Chest pain [Recovered/Resolved]
  - Back pain [Unknown]

NARRATIVE: CASE EVENT DATE: 20160527
